FAERS Safety Report 6135539-4 (Version None)
Quarter: 2009Q1

REPORT INFORMATION
  Report Type: 
  Country: None (occurrence: None)
  Receive Date: 20090327
  Receipt Date: 20090323
  Transmission Date: 20090719
  Serious: Yes (Other)
  Sender: FDA-Public Use
  Company Number: B0567064A

PATIENT
  Age: 60 Year
  Sex: Male

DRUGS (3)
  1. AUGMENTIN '125' [Suspect]
     Dosage: 375MG TWICE PER DAY
     Route: 048
  2. AUGMENTIN '125' [Suspect]
     Dosage: 1.2G THREE TIMES PER DAY
     Route: 042
  3. PARACETAMOL [Concomitant]

REACTIONS (4)
  - CHOLESTASIS [None]
  - HEPATIC STEATOSIS [None]
  - HEPATOMEGALY [None]
  - JAUNDICE [None]
